FAERS Safety Report 8451578-2 (Version None)
Quarter: 2012Q2

REPORT INFORMATION
  Report Type: 
  Country: None (occurrence: None)
  Receive Date: 20120620
  Receipt Date: 20120416
  Transmission Date: 20120825
  Serious: No
  Sender: FDA-Public Use
  Company Number: US-VERTEX PHARMACEUTICALS INC.-AE-2012-003359

PATIENT
  Sex: Male
  Weight: 106.69 kg

DRUGS (3)
  1. PEGASYS [Concomitant]
     Indication: HEPATITIS C
     Route: 058
     Dates: start: 20120227
  2. RIBAVIRIN [Concomitant]
     Indication: HEPATITIS C
     Route: 048
     Dates: start: 20120227
  3. INCIVEK [Suspect]
     Indication: HEPATITIS C
     Route: 048
     Dates: start: 20120227

REACTIONS (10)
  - DIZZINESS [None]
  - ORAL DISORDER [None]
  - GLOSSODYNIA [None]
  - HYPERSOMNIA [None]
  - FEELING ABNORMAL [None]
  - FATIGUE [None]
  - ORAL PAIN [None]
  - PAIN [None]
  - NAUSEA [None]
  - OROPHARYNGEAL PAIN [None]
